FAERS Safety Report 16812804 (Version 1)
Quarter: 2019Q3

REPORT INFORMATION
  Report Type: Spontaneous
  Country: GR (occurrence: GR)
  Receive Date: 20190916
  Receipt Date: 20190916
  Transmission Date: 20191005
  Serious: No
  Sender: FDA-Public Use
  Company Number: GR-JAZZ-2019-GR-001044

PATIENT
  Age: 2 Year
  Sex: Male
  Weight: 17 kg

DRUGS (1)
  1. ASPARAGINASE [Suspect]
     Active Substance: ASPARAGINASE
     Indication: ACUTE LYMPHOCYTIC LEUKAEMIA
     Dosage: 17500 IU
     Route: 041
     Dates: start: 20110523, end: 20110523

REACTIONS (3)
  - Face oedema [Recovered/Resolved]
  - Tachycardia [Recovered/Resolved]
  - Pyrexia [Recovered/Resolved]

NARRATIVE: CASE EVENT DATE: 20110523
